FAERS Safety Report 6837071-9 (Version None)
Quarter: 2010Q3

REPORT INFORMATION
  Report Type: 
  Country: None (occurrence: None)
  Receive Date: 20100713
  Receipt Date: 20070503
  Transmission Date: 20110219
  Serious: No
  Sender: FDA-Public Use
  Company Number: US-PFIZER INC-2007037803

PATIENT
  Sex: Female
  Weight: 67.3 kg

DRUGS (3)
  1. CHANTIX [Suspect]
     Indication: SMOKING CESSATION THERAPY
     Dates: start: 20070301
  2. SYNTHROID [Concomitant]
  3. AMBIEN [Concomitant]

REACTIONS (2)
  - DYSGEUSIA [None]
  - GINGIVAL PAIN [None]
